FAERS Safety Report 9531168 (Version 1)
Quarter: 2013Q3

REPORT INFORMATION
  Report Type: Spontaneous
  Country: US (occurrence: None)
  Receive Date: 20130916
  Receipt Date: 20130916
  Transmission Date: 20140515
  Serious: Yes (Hospitalization)
  Sender: FDA-Public Use
  Company Number: 2013AP007988

PATIENT
  Age: 50 Year
  Sex: Female
  Weight: 103 kg

DRUGS (19)
  1. LITHIUM CARBONATE CAPSULES [Suspect]
  2. METHYLTHIONINIUM CHLORIDE [Suspect]
     Indication: PARATHYROID GLAND OPERATION
  3. INSULIN [Concomitant]
  4. ATENOLOL [Concomitant]
  5. VERAPAMIL [Concomitant]
  6. SYNTHROID [Concomitant]
  7. GABAPENTIN [Concomitant]
  8. OXYBUTYNIN [Concomitant]
  9. LORAZEPAM [Concomitant]
  10. SIMVASTATIN [Concomitant]
  11. CARBAMAZEPINE [Concomitant]
  12. LAMOTRIGINE [Concomitant]
  13. MIDAZOLAM [Concomitant]
  14. FENTANYL [Concomitant]
  15. LIDOCAINE [Concomitant]
  16. PROPOFOL [Concomitant]
  17. SUXAMETHONIUM CHLORIDE [Concomitant]
  18. SEVOFLURANE [Concomitant]
  19. MORPHINE [Concomitant]

REACTIONS (6)
  - Encephalopathy [None]
  - Diabetes insipidus [None]
  - Hypernatraemia [None]
  - Oxygen saturation decreased [None]
  - Lethargy [None]
  - Cardio-respiratory arrest [None]
